FAERS Safety Report 8971519 (Version 2)
Quarter: 2013Q1

REPORT INFORMATION
  Report Type: Spontaneous
  Country: US (occurrence: US)
  Receive Date: 20121218
  Receipt Date: 20130214
  Transmission Date: 20140127
  Serious: Yes (Other)
  Sender: FDA-Public Use
  Company Number: PHEH2012US024627

PATIENT
  Sex: Male

DRUGS (19)
  1. EXELON PATCH [Suspect]
     Dosage: 4.6 MG ONCE DAILY
     Route: 062
  2. OMEPRAZOLE [Concomitant]
  3. FINASTERIDE [Concomitant]
  4. PROZAC [Concomitant]
  5. CHLORDIAZEPOXIDE [Concomitant]
  6. INSPRA [Concomitant]
  7. COZAAR [Concomitant]
  8. SYNTHROID [Concomitant]
  9. FLOMAX ^BOEHRINGER INGELHEIM^ [Concomitant]
  10. PRAVACHOL [Concomitant]
  11. VITAMIN B12 [Concomitant]
  12. BABY ASPIRIN [Concomitant]
  13. NITROGLYCERINE [Concomitant]
  14. VITAMIIN C [Concomitant]
  15. STOOL SOFTENER [Concomitant]
  16. METOPROLOL TARTRATE [Concomitant]
  17. POTASSIUM CHLORIDE [Concomitant]
  18. AMIODARONE [Concomitant]
  19. LASIX [Concomitant]

REACTIONS (3)
  - Myocardial infarction [Unknown]
  - General physical health deterioration [Recovering/Resolving]
  - Hypotension [Unknown]
